FAERS Safety Report 4501109-4 (Version None)
Quarter: 2004Q4

REPORT INFORMATION
  Report Type: 
  Country: None (occurrence: None)
  Receive Date: 20041110
  Receipt Date: 20041104
  Transmission Date: 20050328
  Serious: Yes (Other)
  Sender: FDA-Public Use
  Company Number: US_0411107840

PATIENT
  Age: 61 Year
  Sex: Female

DRUGS (6)
  1. DULOXETINE HYDROCHLORIDE [Suspect]
     Indication: MAJOR DEPRESSION
     Dosage: 60 MG/1 DAY
     Dates: start: 20040901, end: 20040921
  2. CYTOMEL [Concomitant]
  3. TRAZODONE HCL [Concomitant]
  4. AMBIEN [Concomitant]
  5. LORAZEPAM [Concomitant]
  6. AMITRIPTYLINE HCL [Concomitant]

REACTIONS (9)
  - CONDITION AGGRAVATED [None]
  - DEPRESSION [None]
  - ILL-DEFINED DISORDER [None]
  - INFECTION [None]
  - INFLUENZA LIKE ILLNESS [None]
  - PAIN [None]
  - SLEEP DISORDER [None]
  - SUICIDAL IDEATION [None]
  - THERAPY NON-RESPONDER [None]
